FAERS Safety Report 15390278 (Version 1)
Quarter: 2018Q3

REPORT INFORMATION
  Report Type: Spontaneous
  Country: JP (occurrence: JP)
  Receive Date: 20180908
  Receipt Date: 20180908
  Transmission Date: 20181010
  Serious: Yes (Disabling, Other)
  Sender: FDA-Public Use
  Company Number: None

PATIENT
  Age: 62 Year
  Sex: Male
  Weight: 67.5 kg

DRUGS (11)
  1. VITAMIN D [Concomitant]
     Active Substance: CHOLECALCIFEROL
  2. FISH OIL [Concomitant]
     Active Substance: FISH OIL
  3. MILK THISTLE [Concomitant]
     Active Substance: DIETARY SUPPLEMENT\HERBALS\MILK THISTLE
  4. CALCIUM [Concomitant]
     Active Substance: CALCIUM
  5. ASTRAGALUS [Concomitant]
  6. OXYCODON [Concomitant]
     Active Substance: OXYCODONE
  7. DENOSUMAB [Suspect]
     Active Substance: DENOSUMAB
     Indication: BONE CANCER
     Dosage: ?          QUANTITY:1 INJECTION(S);OTHER FREQUENCY:APPROX. 1X A MONTH;?
     Route: 058
     Dates: start: 20160804, end: 20170921
  8. REISHIMAX [Concomitant]
  9. GREEN TEA EXTRACT [Concomitant]
  10. NIVOLUMAB [Concomitant]
     Active Substance: NIVOLUMAB
  11. VITAMIN C [Concomitant]
     Active Substance: ASCORBIC ACID

REACTIONS (3)
  - Pain in jaw [None]
  - Endodontic procedure [None]
  - Osteonecrosis of jaw [None]

NARRATIVE: CASE EVENT DATE: 20170907
